FAERS Safety Report 9003897 (Version 1)
Quarter: 2013Q1

REPORT INFORMATION
  Report Type: Spontaneous
  Country: US (occurrence: US)
  Receive Date: 20130108
  Receipt Date: 20130108
  Transmission Date: 20140127
  Serious: No
  Sender: FDA-Public Use
  Company Number: US-ASTRAZENECA-2013SE00365

PATIENT
  Age: 40 Year
  Sex: Female

DRUGS (2)
  1. PRILOSEC OTC [Suspect]
     Indication: GASTROOESOPHAGEAL REFLUX DISEASE
     Route: 048
  2. PRILOSEC [Suspect]
     Indication: GASTROOESOPHAGEAL REFLUX DISEASE
     Route: 048

REACTIONS (13)
  - Weight increased [Unknown]
  - Thirst [Unknown]
  - Increased viscosity of bronchial secretion [Unknown]
  - Memory impairment [Unknown]
  - Thinking abnormal [Unknown]
  - Appetite disorder [Unknown]
  - Dry eye [Unknown]
  - Fatigue [Unknown]
  - Exercise tolerance decreased [Unknown]
  - Impaired work ability [Unknown]
  - Arthralgia [Unknown]
  - Headache [Unknown]
  - Dizziness [Unknown]
